FAERS Safety Report 9449254 (Version 1)
Quarter: 2013Q3

REPORT INFORMATION
  Report Type: Spontaneous
  Country: US (occurrence: US)
  Receive Date: 20130808
  Receipt Date: 20130808
  Transmission Date: 20140515
  Serious: Yes (Other)
  Sender: FDA-Public Use
  Company Number: US-GLAXOSMITHKLINE-A1036844A

PATIENT
  Sex: Female

DRUGS (5)
  1. COREG [Suspect]
     Indication: PRODUCT USED FOR UNKNOWN INDICATION
     Route: 065
  2. LIPITOR [Suspect]
     Indication: PRODUCT USED FOR UNKNOWN INDICATION
     Route: 065
  3. ZOLOFT [Suspect]
     Indication: PRODUCT USED FOR UNKNOWN INDICATION
     Route: 065
  4. PROCRIT [Suspect]
     Indication: PRODUCT USED FOR UNKNOWN INDICATION
     Route: 065
  5. PLAVIX [Suspect]
     Indication: PRODUCT USED FOR UNKNOWN INDICATION
     Route: 065

REACTIONS (32)
  - Myocardial infarction [Unknown]
  - Carotid artery occlusion [Unknown]
  - Transient ischaemic attack [Unknown]
  - Transient ischaemic attack [Unknown]
  - Cholecystectomy [Unknown]
  - Adrenal mass [Unknown]
  - Retinal haemorrhage [Unknown]
  - Retinopathy [Unknown]
  - Deafness [Unknown]
  - Coronary artery bypass [Unknown]
  - Renal impairment [Unknown]
  - Kidney infection [Unknown]
  - Erythropoiesis abnormal [Unknown]
  - Bone marrow disorder [Unknown]
  - Intestinal mass [Unknown]
  - Benign anorectal neoplasm [Unknown]
  - Mitral valve incompetence [Unknown]
  - Arterial occlusive disease [Unknown]
  - Depression [Unknown]
  - Blindness [Unknown]
  - Suicidal ideation [Unknown]
  - Fall [Unknown]
  - Anaemia [Unknown]
  - Constipation [Unknown]
  - Dyspnoea [Unknown]
  - Fatigue [Unknown]
  - Gait disturbance [Unknown]
  - Diarrhoea [Unknown]
  - Blood glucose increased [Unknown]
  - Disturbance in attention [Unknown]
  - Dementia [Unknown]
  - Drug ineffective [Unknown]
